FAERS Safety Report 22211082 (Version 1)
Quarter: 2023Q2

REPORT INFORMATION
  Report Type: Spontaneous
  Country: US (occurrence: US)
  Receive Date: 20230414
  Receipt Date: 20230414
  Transmission Date: 20230722
  Serious: No
  Sender: FDA-Public Use
  Company Number: US-JNJFOC-20200128192

PATIENT
  Age: 80 Year

DRUGS (1)
  1. IMODIUM [Suspect]
     Active Substance: LOPERAMIDE HYDROCHLORIDE
     Indication: Colitis
     Route: 065

REACTIONS (2)
  - Product packaging issue [Unknown]
  - Wrong technique in product usage process [Unknown]
